FAERS Safety Report 7902157-4 (Version None)
Quarter: 2011Q4

REPORT INFORMATION
  Report Type: 
  Country: None (occurrence: None)
  Receive Date: 20111107
  Receipt Date: 20111107
  Transmission Date: 20120403
  Serious: No
  Sender: FDA-Public Use
  Company Number: None

PATIENT
  Sex: Female

DRUGS (1)
  1. XELODA [Suspect]
     Indication: DERMATOLOGIC EXAMINATION ABNORMAL
     Dosage: 500 MG PO TAKE 4 TABLETS BY MOUTH EVERY MORNING + 3 TABLETS FOR 7 DAYS, THEN OFF 7 DAYS, REPEAT CYCL
     Route: 048
     Dates: start: 20111021

REACTIONS (4)
  - SKIN TIGHTNESS [None]
  - PAIN IN EXTREMITY [None]
  - SKIN DISCOLOURATION [None]
  - HYPOAESTHESIA [None]
